FAERS Safety Report 23626639 (Version 6)
Quarter: 2024Q3

REPORT INFORMATION
  Report Type: Spontaneous
  Country: CA (occurrence: CA)
  Receive Date: 20240313
  Receipt Date: 20240801
  Transmission Date: 20241017
  Serious: Yes (Death, Hospitalization, Other)
  Sender: INCYTE
  Company Number: CA-INCYTE CORPORATION-2024IN001995

PATIENT

DRUGS (3)
  1. PEMAZYRE [Suspect]
     Active Substance: PEMIGATINIB
     Indication: Acinar cell carcinoma of pancreas
     Dosage: 13.5 MILLIGRAM, 14 DAYS ON AND 7 DAYS OFF
     Route: 048
     Dates: start: 20240221, end: 202405
  2. PEMAZYRE [Suspect]
     Active Substance: PEMIGATINIB
     Dosage: 9 MILLIGRAM, 14 DAYS ON AND 7 DAYS OFF
     Route: 048
     Dates: start: 20240221
  3. PEMAZYRE [Suspect]
     Active Substance: PEMIGATINIB
     Dosage: 13.5 MILLIGRAM, 14 DAYS ON AND 7 DAYS OFF (21 DAY CYCLE)
     Route: 048
     Dates: start: 20240515

REACTIONS (8)
  - Death [Fatal]
  - Fall [Unknown]
  - Oesophageal varices haemorrhage [Unknown]
  - Blood phosphorus decreased [Unknown]
  - Haemoglobin decreased [Recovered/Resolved]
  - Product distribution issue [Unknown]
  - Off label use [Unknown]
  - Blood phosphorus increased [Unknown]

NARRATIVE: CASE EVENT DATE: 20240221
